FAERS Safety Report 16469905 (Version 1)
Quarter: 2019Q2

REPORT INFORMATION
  Report Type: Spontaneous
  Country: US (occurrence: US)
  Receive Date: 20190624
  Receipt Date: 20190624
  Transmission Date: 20190711
  Serious: No
  Sender: FDA-Public Use
  Company Number: US-SA-2019SA169286

PATIENT
  Age: 58 Year

DRUGS (1)
  1. DUPIXENT [Suspect]
     Active Substance: DUPILUMAB
     Indication: DERMATITIS ATOPIC
     Dosage: 600 MG, 1X
     Dates: start: 20190605, end: 20190605

REACTIONS (2)
  - Erythema of eyelid [Unknown]
  - Eye irritation [Unknown]

NARRATIVE: CASE EVENT DATE: 20190617
